FAERS Safety Report 5503556-0 (Version None)
Quarter: 2007Q4

REPORT INFORMATION
  Report Type: 
  Country: None (occurrence: None)
  Receive Date: 20071029
  Receipt Date: 20071017
  Transmission Date: 20080405
  Serious: Yes (Hospitalization)
  Sender: FDA-Public Use
  Company Number: 2007SP021078

PATIENT
  Age: 4 Year
  Sex: Female
  Weight: 18 kg

DRUGS (2)
  1. CLARITIN [Suspect]
     Indication: HYPERSENSITIVITY
     Dosage: 2.5 ML; QD; PO
     Route: 048
     Dates: start: 20071007, end: 20071014
  2. NOVALGINA (METAMIZOLE SODIUM) [Suspect]
     Indication: SINUSITIS
     Dosage: ; QID; PO
     Route: 048

REACTIONS (2)
  - ACUTE SINUSITIS [None]
  - HYPOTHERMIA [None]
